FAERS Safety Report 8072760-2 (Version None)
Quarter: 2012Q1

REPORT INFORMATION
  Report Type: 
  Country: None (occurrence: None)
  Receive Date: 20120120
  Receipt Date: 20120116
  Transmission Date: 20120608
  Serious: Yes (Death, Hospitalization)
  Sender: FDA-Public Use
  Company Number: 2011SP033952

PATIENT
  Age: 26 Year
  Sex: Female
  Weight: 45 kg

DRUGS (2)
  1. DESOGESTREL AND ETHINYL ESTRADIOL [Suspect]
     Indication: CONTRACEPTION
     Dates: start: 20090401
  2. DESOGESTRE/ETHINYL ESTRADIOL [Suspect]
     Indication: CONTRACEPTION
     Dates: start: 20010101

REACTIONS (24)
  - BRAIN HYPOXIA [None]
  - NOSOCOMIAL INFECTION [None]
  - EPISTAXIS [None]
  - PROTEIN S DECREASED [None]
  - KLEBSIELLA INFECTION [None]
  - CEREBRAL HAEMORRHAGE [None]
  - MUSCLE SPASMS [None]
  - BRAIN OEDEMA [None]
  - FALL [None]
  - MYDRIASIS [None]
  - ELECTROENCEPHALOGRAM ABNORMAL [None]
  - CARDIO-RESPIRATORY ARREST [None]
  - LUNG DISORDER [None]
  - VULVOVAGINAL BURNING SENSATION [None]
  - PROTEIN C DECREASED [None]
  - MALAISE [None]
  - LOSS OF CONSCIOUSNESS [None]
  - PULMONARY EMBOLISM [None]
  - STAPHYLOCOCCAL INFECTION [None]
  - PUPILS UNEQUAL [None]
  - COAGULATION FACTOR XI LEVEL DECREASED [None]
  - CENTRAL NERVOUS SYSTEM NECROSIS [None]
  - PHLEBITIS [None]
  - AREFLEXIA [None]
